FAERS Safety Report 8462631-1 (Version None)
Quarter: 2012Q2

REPORT INFORMATION
  Report Type: 
  Country: None (occurrence: None)
  Receive Date: 20120625
  Receipt Date: 20120622
  Transmission Date: 20120825
  Serious: Yes (Hospitalization)
  Sender: FDA-Public Use
  Company Number: US-ROCHE-1076590

PATIENT
  Sex: Female
  Weight: 86.26 kg

DRUGS (3)
  1. RIBAVIRIN [Suspect]
     Indication: HEPATITIS C
     Dosage: DIVIDED DOSES
     Route: 048
     Dates: start: 20120121
  2. INCIVEK [Suspect]
     Indication: HEPATITIS C
     Dates: start: 20120121, end: 20120407
  3. PEGASYS [Suspect]
     Indication: HEPATITIS C
     Route: 058
     Dates: start: 20120121

REACTIONS (5)
  - WEIGHT DECREASED [None]
  - BLOOD POTASSIUM DECREASED [None]
  - ANAEMIA [None]
  - MALNUTRITION [None]
  - DEHYDRATION [None]
